FAERS Safety Report 18866303 (Version 4)
Quarter: 2021Q2

REPORT INFORMATION
  Report Type: Report from Study
  Country: US (occurrence: US)
  Receive Date: 20210208
  Receipt Date: 20210428
  Transmission Date: 20210717
  Serious: Yes (Hospitalization)
  Sender: FDA-Public Use
  Company Number: US-SEATTLE GENETICS-2021SGN00419

PATIENT
  Sex: Female

DRUGS (2)
  1. TUCATINIB [Suspect]
     Active Substance: TUCATINIB
     Indication: BREAST CANCER FEMALE
     Dosage: UNK
  2. CAPECITABINE. [Concomitant]
     Active Substance: CAPECITABINE

REACTIONS (8)
  - Malaise [Unknown]
  - Dry skin [Recovering/Resolving]
  - Hospitalisation [Unknown]
  - Diarrhoea [Unknown]
  - Product dose omission issue [Unknown]
  - Heart rate increased [Unknown]
  - Fatigue [Unknown]
  - Unevaluable event [Unknown]
